FAERS Safety Report 7606193-7 (Version None)
Quarter: 2011Q3

REPORT INFORMATION
  Report Type: 
  Country: None (occurrence: None)
  Receive Date: 20110713
  Receipt Date: 20110711
  Transmission Date: 20111222
  Serious: Yes (Hospitalization)
  Sender: FDA-Public Use
  Company Number: AU-BAYER-2011-059486

PATIENT
  Age: 84 Year
  Sex: Female

DRUGS (1)
  1. ULTRAVIST 150 [Suspect]
     Indication: ARTERIOGRAM CORONARY
     Dosage: UNK
     Dates: start: 20110708, end: 20110708

REACTIONS (3)
  - MUSCLE SPASMS [None]
  - SWELLING [None]
  - PRURITUS [None]
